FAERS Safety Report 10467941 (Version 1)
Quarter: 2014Q3

REPORT INFORMATION
  Report Type: Spontaneous
  Country: DE (occurrence: DE)
  Receive Date: 20140922
  Receipt Date: 20140922
  Transmission Date: 20150326
  Serious: Yes (Other)
  Sender: FDA-Public Use
  Company Number: GXKR2014DE003553

PATIENT
  Age: 66 Year
  Sex: Female

DRUGS (1)
  1. CLARITHROMYCIN 1A PHARMA [Suspect]
     Active Substance: CLARITHROMYCIN
     Route: 048

REACTIONS (3)
  - Dysgeusia [Unknown]
  - Cardiac failure [Unknown]
  - Tongue discolouration [Unknown]
